FAERS Safety Report 7364151-4 (Version None)
Quarter: 2011Q1

REPORT INFORMATION
  Report Type: 
  Country: None (occurrence: None)
  Receive Date: 20110321
  Receipt Date: 20100909
  Transmission Date: 20110831
  Serious: Yes (Hospitalization, Other)
  Sender: FDA-Public Use
  Company Number: US-BAYER-201033255NA

PATIENT
  Sex: Female
  Weight: 83.182 kg

DRUGS (2)
  1. YAZ [Suspect]
     Indication: CONTRACEPTION
     Dosage: UNK UNK, UNK
     Route: 048
     Dates: start: 20070727
  2. ZOLOFT [Concomitant]
     Indication: ANXIETY
     Route: 065
     Dates: start: 20040101

REACTIONS (3)
  - HYPERSENSITIVITY [None]
  - PAIN [None]
  - VASCULAR RUPTURE [None]
